FAERS Safety Report 18331046 (Version 3)
Quarter: 2020Q4

REPORT INFORMATION
  Report Type: Spontaneous
  Country: US (occurrence: US)
  Receive Date: 20200930
  Receipt Date: 20201231
  Transmission Date: 20210113
  Serious: No
  Sender: FDA-Public Use
  Company Number: US-STRONGBRIDGE BIOPHARMA-2020-STR-000244

PATIENT
  Age: 47 Year
  Sex: Female

DRUGS (4)
  1. KEVEYIS [Suspect]
     Active Substance: DICHLORPHENAMIDE
     Indication: FAMILIAL PERIODIC PARALYSIS
     Dosage: 25 MG, QOD
     Route: 048
  2. KEVEYIS [Suspect]
     Active Substance: DICHLORPHENAMIDE
     Dosage: 25 MG, QD
     Route: 048
  3. KEVEYIS [Suspect]
     Active Substance: DICHLORPHENAMIDE
     Dosage: 50 MG, TWICE WEEKLY
     Route: 048
  4. KEVEYIS [Suspect]
     Active Substance: DICHLORPHENAMIDE
     Dosage: 50 MG, QD
     Route: 048
     Dates: start: 20200918

REACTIONS (10)
  - Dry mouth [Unknown]
  - Gastrooesophageal reflux disease [Recovering/Resolving]
  - Prescribed underdose [Unknown]
  - Headache [Unknown]
  - Fatigue [Recovering/Resolving]
  - Polyuria [Unknown]
  - Constipation [Recovering/Resolving]
  - Hypercalcaemia [Not Recovered/Not Resolved]
  - Nausea [Recovering/Resolving]
  - Wrong technique in product usage process [Unknown]

NARRATIVE: CASE EVENT DATE: 202009
